FAERS Safety Report 8504922-1 (Version None)
Quarter: 2012Q3

REPORT INFORMATION
  Report Type: 
  Country: None (occurrence: None)
  Receive Date: 20120712
  Receipt Date: 20120702
  Transmission Date: 20120928
  Serious: Yes (Hospitalization)
  Sender: FDA-Public Use
  Company Number: PHHO2011US03792

PATIENT
  Sex: Female
  Weight: 75 kg

DRUGS (5)
  1. CERTICAN [Suspect]
     Dosage: 1.5 MG, BID
     Route: 048
     Dates: start: 20110127
  2. CORTICOSTEROIDS [Suspect]
     Indication: RENAL TRANSPLANT
     Route: 048
  3. CERTICAN [Suspect]
     Indication: RENAL TRANSPLANT
     Dosage: 0.75 MG, BID
     Route: 048
     Dates: start: 20110126, end: 20110127
  4. SIMULECT [Suspect]
     Indication: RENAL TRANSPLANT
  5. TACROLIMUS [Suspect]
     Route: 048

REACTIONS (5)
  - LYMPHOCELE [None]
  - HYDRONEPHROSIS [None]
  - OEDEMA PERIPHERAL [None]
  - PERINEPHRIC COLLECTION [None]
  - PAIN IN EXTREMITY [None]
